FAERS Safety Report 15098625 (Version 1)
Quarter: 2018Q3

REPORT INFORMATION
  Report Type: Spontaneous
  Country: MX (occurrence: MX)
  Receive Date: 20180702
  Receipt Date: 20180702
  Transmission Date: 20181010
  Serious: Yes (Other)
  Sender: FDA-Public Use
  Company Number: MX-CELLTRION INC.-2018MX021091

PATIENT

DRUGS (2)
  1. DIFENHIDRAMINA                     /00000401/ [Concomitant]
     Dosage: UNK
     Dates: start: 20180627, end: 20180627
  2. REMSIMA [Suspect]
     Active Substance: INFLIXIMAB
     Indication: PSORIASIS
     Dosage: 400 MG,EVERY 2 MONTHS
     Route: 042

REACTIONS (1)
  - Upper limb fracture [Unknown]
